FAERS Safety Report 10903340 (Version 1)
Quarter: 2015Q1

REPORT INFORMATION
  Report Type: Spontaneous
  Country: US (occurrence: None)
  Receive Date: 20150304
  Receipt Date: 20150304
  Transmission Date: 20150721
  Serious: Yes (Hospitalization)
  Sender: FDA-Public Use
  Company Number: COM-002976

PATIENT
  Age: 53 Year
  Sex: Female
  Weight: 115.67 kg

DRUGS (7)
  1. MELOXICAM. [Concomitant]
     Active Substance: MELOXICAM
  2. VITAMIN D [Concomitant]
     Active Substance: CHOLECALCIFEROL
  3. CLARINEX [Concomitant]
     Active Substance: DESLORATADINE
  4. 3% HYDROGEN PEROXIDE [Suspect]
     Active Substance: HYDROGEN PEROXIDE
     Indication: ACCIDENT
     Dates: start: 20150225
  5. SINGULAIR [Concomitant]
     Active Substance: MONTELUKAST SODIUM
  6. RANITIDINE [Concomitant]
     Active Substance: RANITIDINE\RANITIDINE HYDROCHLORIDE
  7. NEXIUM [Concomitant]
     Active Substance: ESOMEPRAZOLE MAGNESIUM

REACTIONS (8)
  - Injury [None]
  - Device leakage [None]
  - Pruritus [None]
  - Skin discolouration [None]
  - Chemical injury [None]
  - Product container seal issue [None]
  - Paraesthesia [None]
  - Dermatitis [None]

NARRATIVE: CASE EVENT DATE: 20150225
